FAERS Safety Report 7552069-3 (Version None)
Quarter: 2011Q2

REPORT INFORMATION
  Report Type: 
  Country: None (occurrence: None)
  Receive Date: 20110616
  Receipt Date: 20110601
  Transmission Date: 20111010
  Serious: Yes (Hospitalization)
  Sender: FDA-Public Use
  Company Number: US-JNJFOC-20110510222

PATIENT
  Sex: Female
  Weight: 41.1 kg

DRUGS (17)
  1. SUDAFED NOS [Concomitant]
  2. TYLENOL-500 [Concomitant]
  3. PREDNISONE [Concomitant]
  4. GAS X [Concomitant]
  5. REMICADE [Suspect]
     Indication: COLITIS ULCERATIVE
     Route: 042
     Dates: start: 20110510
  6. REMICADE [Suspect]
     Route: 042
     Dates: start: 20090519
  7. ANTIBIOTICS [Suspect]
     Indication: INFLAMMATORY BOWEL DISEASE
  8. FLUTICASONE PROPIONATE [Concomitant]
     Route: 055
  9. PREVACID [Concomitant]
  10. PROBIOTICS [Concomitant]
  11. FERROUS SULFATE TAB [Concomitant]
  12. BENADRYL [Concomitant]
  13. VITAMIN D [Concomitant]
  14. SINGULAIR [Concomitant]
  15. LACTAID [Concomitant]
  16. MESALAMINE [Suspect]
     Indication: COLITIS ULCERATIVE
     Route: 048
  17. MULTI-VITAMINS [Concomitant]

REACTIONS (4)
  - DEHYDRATION [None]
  - HYPONATRAEMIA [None]
  - COXSACKIE VIRUS TEST POSITIVE [None]
  - CLOSTRIDIAL INFECTION [None]
